FAERS Safety Report 21577509 (Version 1)
Quarter: 2022Q4

REPORT INFORMATION
  Report Type: Spontaneous
  Country: US (occurrence: None)
  Receive Date: 20221109
  Receipt Date: 20221109
  Transmission Date: 20230113
  Serious: Yes (Disabling)
  Sender: FDA-Public Use
  Company Number: None

PATIENT
  Age: 56 Year
  Sex: Female
  Weight: 132.75 kg

DRUGS (5)
  1. LEQVIO [Suspect]
     Active Substance: INCLISIRAN SODIUM
     Indication: Blood cholesterol increased
     Dosage: OTHER ROUTE : GIVEN EVERY 3 MOS.;?
     Route: 050
     Dates: start: 20221021
  2. HYDROCHLOROTHIAZIDE [Concomitant]
     Active Substance: HYDROCHLOROTHIAZIDE
  3. LOSARTAN [Concomitant]
     Active Substance: LOSARTAN
  4. LUMIGAN [Concomitant]
     Active Substance: BIMATOPROST
  5. ALEVE [Concomitant]
     Active Substance: NAPROXEN SODIUM

REACTIONS (15)
  - Peripheral swelling [None]
  - Injection site swelling [None]
  - Injection site pain [None]
  - Injection site discolouration [None]
  - Gait inability [None]
  - Musculoskeletal stiffness [None]
  - Weight bearing difficulty [None]
  - Arthralgia [None]
  - Arthralgia [None]
  - Headache [None]
  - Influenza like illness [None]
  - Pain [None]
  - Cough [None]
  - Drug ineffective [None]
  - Feeling abnormal [None]

NARRATIVE: CASE EVENT DATE: 20221021
